FAERS Safety Report 13269370 (Version 2)
Quarter: 2017Q2

REPORT INFORMATION
  Report Type: Report from Study
  Country: FR (occurrence: FR)
  Receive Date: 20170224
  Receipt Date: 20170428
  Transmission Date: 20170830
  Serious: Yes (Death)
  Sender: FDA-Public Use
  Company Number: FR-PFIZER INC-2017080228

PATIENT

DRUGS (2)
  1. DOCETAXEL. [Suspect]
     Active Substance: DOCETAXEL
     Indication: SQUAMOUS CELL CARCINOMA OF HEAD AND NECK
     Dosage: 75 MG/M2, VIA 1 HOUR IV INFUSION ON DAY 8, REPEATED EVERY 21 DAYS
     Route: 042
  2. GEMCITABINE HYDROCHLORIDE. [Suspect]
     Active Substance: GEMCITABINE HYDROCHLORIDE
     Indication: SQUAMOUS CELL CARCINOMA OF HEAD AND NECK
     Dosage: 1000 MG/M2, VIA 30 MINUTE IV INFUSION ON DAYS 1 AND 8, REPEATED EVERY 21 DAYS
     Route: 042

REACTIONS (2)
  - Septic shock [Fatal]
  - Neutropenia [Fatal]
